FAERS Safety Report 7877678-3 (Version None)
Quarter: 2011Q4

REPORT INFORMATION
  Report Type: 
  Country: None (occurrence: None)
  Receive Date: 20111031
  Receipt Date: 20111031
  Transmission Date: 20120403
  Serious: Yes (Hospitalization, Other)
  Sender: FDA-Public Use
  Company Number: None

PATIENT
  Age: 55 Year
  Weight: 81.646 kg

DRUGS (1)
  1. RECLAST [Suspect]
     Indication: OSTEOPOROSIS
     Dates: start: 20110826, end: 20110826

REACTIONS (10)
  - DIARRHOEA [None]
  - PYREXIA [None]
  - THROMBOSIS [None]
  - DEHYDRATION [None]
  - GROIN PAIN [None]
  - ABASIA [None]
  - PAIN [None]
  - NAUSEA [None]
  - VOMITING [None]
  - DYSPNOEA [None]
